FAERS Safety Report 4438406-7 (Version None)
Quarter: 2004Q3

REPORT INFORMATION
  Report Type: 
  Country: None (occurrence: None)
  Receive Date: 20040831
  Receipt Date: 20040827
  Transmission Date: 20050211
  Serious: Yes (Other)
  Sender: FDA-Public Use
  Company Number: PHBS2004NO11364

PATIENT
  Age: 39 Year
  Sex: Female

DRUGS (1)
  1. ZELMAC [Suspect]
     Indication: CONSTIPATION
     Dosage: 6 MG, BID
     Route: 048

REACTIONS (1)
  - HAIR GROWTH ABNORMAL [None]
